FAERS Safety Report 14149636 (Version 1)
Quarter: 2017Q4

REPORT INFORMATION
  Report Type: Spontaneous
  Country: FR (occurrence: FR)
  Receive Date: 20171101
  Receipt Date: 20171101
  Transmission Date: 20180321
  Serious: Yes (Hospitalization)
  Sender: FDA-Public Use
  Company Number: FR-PFIZER INC-2017461814

PATIENT
  Age: 47 Year
  Sex: Female

DRUGS (2)
  1. XANAX [Suspect]
     Active Substance: ALPRAZOLAM
     Dosage: UNK
     Route: 048
     Dates: start: 20170927, end: 20171010
  2. BRINTELLIX [Suspect]
     Active Substance: VORTIOXETINE HYDROBROMIDE
     Dosage: 10 MG, 1X/DAY
     Route: 048
     Dates: start: 20170927, end: 20171010

REACTIONS (4)
  - Self-injurious ideation [Recovered/Resolved]
  - Psychomotor skills impaired [Unknown]
  - Muscle contractions involuntary [Unknown]
  - Tension [Unknown]

NARRATIVE: CASE EVENT DATE: 20171005
